FAERS Safety Report 18737780 (Version 2)
Quarter: 2021Q1

REPORT INFORMATION
  Report Type: Spontaneous
  Country: TR (occurrence: TR)
  Receive Date: 20210114
  Receipt Date: 20210203
  Transmission Date: 20210419
  Serious: Yes (Death, Hospitalization, Other)
  Sender: FDA-Public Use
  Company Number: TR-SUN PHARMACEUTICAL INDUSTRIES LTD-2020RR-275119

PATIENT
  Age: 36 Year
  Sex: Male

DRUGS (2)
  1. VELDEZO 3.5MG IV DEVA [BORTEZOMIB] [Suspect]
     Active Substance: BORTEZOMIB
     Indication: T-CELL LYMPHOMA
     Dosage: THREE COURSES
     Route: 065
  2. DEKORT [Suspect]
     Active Substance: DEXAMETHASONE
     Indication: T-CELL LYMPHOMA
     Dosage: THREE COURSES
     Route: 065

REACTIONS (2)
  - Pseudomonas infection [Unknown]
  - Multiple organ dysfunction syndrome [Fatal]
